FAERS Safety Report 14433449 (Version 1)
Quarter: 2018Q1

REPORT INFORMATION
  Report Type: Spontaneous
  Country: US (occurrence: US)
  Receive Date: 20180124
  Receipt Date: 20180124
  Transmission Date: 20180509
  Serious: No
  Sender: FDA-Public Use
  Company Number: US-PCCINC-T201701307

PATIENT

DRUGS (7)
  1. ROPINIROLE. [Concomitant]
     Active Substance: ROPINIROLE
  2. VESICARE [Concomitant]
     Active Substance: SOLIFENACIN SUCCINATE
     Dosage: 10 MG
  3. BOTOX [Concomitant]
     Active Substance: ONABOTULINUMTOXINA
  4. PROGESTERONE. [Concomitant]
     Active Substance: PROGESTERONE
     Dosage: 200 MG
  5. BACLOFEN. [Concomitant]
     Active Substance: BACLOFEN
     Dosage: 10 MG
  6. GABLOFEN [Suspect]
     Active Substance: BACLOFEN
     Indication: MUSCLE SPASTICITY
     Dosage: 394.9 MCG/DAY
     Route: 037
     Dates: start: 20160525, end: 20170213
  7. GABLOFEN [Suspect]
     Active Substance: BACLOFEN
     Dosage: 337.4 MCG/DAY
     Route: 037
     Dates: start: 20170214

REACTIONS (3)
  - Gait disturbance [Unknown]
  - Asthenia [Unknown]
  - Muscle twitching [Unknown]
